FAERS Safety Report 8802678 (Version 1)
Quarter: 2012Q4

REPORT INFORMATION
  Report Type: 
  Country: US (occurrence: US)
  Receive Date: 20120921
  Receipt Date: 20120921
  Transmission Date: 20130627
  Serious: No
  Sender: FDA-Public Use
  Company Number: US-PFIZER INC-2012232687

PATIENT
  Sex: Female

DRUGS (2)
  1. LYRICA [Suspect]
     Dosage: 25 mg, 2x/day (twice daily)
  2. CYMBALTA [Suspect]
     Dosage: UNK

REACTIONS (3)
  - Abdominal discomfort [Unknown]
  - Condition aggravated [Unknown]
  - Drug dispensing error [Unknown]
